FAERS Safety Report 10244985 (Version 2)
Quarter: 2014Q2

REPORT INFORMATION
  Report Type: Spontaneous
  Country: US (occurrence: US)
  Receive Date: 20140618
  Receipt Date: 20140618
  Transmission Date: 20141212
  Serious: No
  Sender: FDA-Public Use
  Company Number: US-GALDERMA-US14001001

PATIENT
  Age: 50 Year
  Sex: Male

DRUGS (5)
  1. MIRVASO (BRIMONIDINE) TOPICAL GEL, 0.33% [Suspect]
     Indication: ERYTHEMA
     Dosage: 0.33%
     Route: 061
     Dates: start: 20140216, end: 20140223
  2. DESONIDE (DESONIDE) LOTION 0.05% [Concomitant]
     Indication: DRY SKIN
     Route: 061
  3. AMNESTEEM (ISOTRETINOIN) 40 MG [Concomitant]
     Indication: RASH PAPULAR
     Dosage: 40 MG
     Route: 048
     Dates: start: 2000
  4. ASPIRIN (SALICYLATE ACID) 81 MG [Concomitant]
     Dosage: 81 MG
     Route: 048
     Dates: start: 2007
  5. ATACAND [Concomitant]
     Dosage: 16 MG
     Dates: start: 2007

REACTIONS (10)
  - Condition aggravated [Recovered/Resolved]
  - Rash erythematous [Recovered/Resolved]
  - Activities of daily living impaired [Recovered/Resolved]
  - Emotional distress [Recovered/Resolved]
  - Feeling hot [Recovered/Resolved]
  - Erythema [Recovered/Resolved]
  - Skin burning sensation [Recovering/Resolving]
  - Drug ineffective for unapproved indication [Recovered/Resolved]
  - Off label use [Recovered/Resolved]
  - Inappropriate schedule of drug administration [Recovered/Resolved]
